FAERS Safety Report 5866715-3 (Version None)
Quarter: 2008Q3

REPORT INFORMATION
  Report Type: 
  Country: None (occurrence: None)
  Receive Date: 20080828
  Receipt Date: 20080828
  Transmission Date: 20090109
  Serious: Yes (Death)
  Sender: FDA-Public Use
  Company Number: None

PATIENT
  Sex: Female

DRUGS (1)
  1. WARFARIN SODIUM [Suspect]
     Indication: ATRIAL FIBRILLATION
     Dosage: 5 MG DAILY PO
     Route: 048

REACTIONS (6)
  - BLOOD PRESSURE INCREASED [None]
  - CEREBELLAR HAEMORRHAGE [None]
  - ECCHYMOSIS [None]
  - FALL [None]
  - HYPOTHERMIA [None]
  - LOSS OF CONSCIOUSNESS [None]
